FAERS Safety Report 13107974 (Version 1)
Quarter: 2017Q1

REPORT INFORMATION
  Report Type: Spontaneous
  Country: US (occurrence: US)
  Receive Date: 20170112
  Receipt Date: 20170112
  Transmission Date: 20170428
  Serious: No
  Sender: FDA-Public Use
  Company Number: US-BAYER-2017-006137

PATIENT
  Sex: Female
  Weight: 51 kg

DRUGS (3)
  1. ALEVE [Suspect]
     Active Substance: NAPROXEN SODIUM
     Indication: PAIN
     Dosage: 1 DF, HS
     Route: 048
     Dates: end: 20170110
  2. BAYER LOW DOSE [Suspect]
     Active Substance: ASPIRIN
     Dosage: 1 DF, QD
     Route: 048
     Dates: end: 20170110
  3. ALEVE [Suspect]
     Active Substance: NAPROXEN SODIUM
     Indication: PAIN
     Dosage: 1 DF, PRN

REACTIONS (2)
  - Coagulopathy [Not Recovered/Not Resolved]
  - Increased tendency to bruise [Not Recovered/Not Resolved]
